FAERS Safety Report 7914695-9 (Version None)
Quarter: 2011Q4

REPORT INFORMATION
  Report Type: 
  Country: None (occurrence: None)
  Receive Date: 20111110
  Receipt Date: 20111027
  Transmission Date: 20120403
  Serious: Yes (Death)
  Sender: FDA-Public Use
  Company Number: 2011SE62516

PATIENT
  Age: 78 Year
  Sex: Male

DRUGS (8)
  1. (LEVOFLOXACIN HYDRATE) [Concomitant]
  2. PIPERACILLIN SODIUM [Concomitant]
  3. AMBISOME [Suspect]
     Indication: FUNGAL INFECTION
     Dosage: 100 MG QD INTRAVENOUS DRIP FORMULATION: INJECTION
     Route: 041
  4. LASIX [Suspect]
     Indication: CARDIAC FAILURE CONGESTIVE
     Dosage: 20 MG QD INTRAVENOUS DRIP FORMULATION: INJECTION
     Route: 041
  5. (FREEZE-DRIED PH4 TREATED HUMAN NORMAL IMMUNOGLOBULIN) [Concomitant]
  6. NEORAL [Suspect]
     Indication: APLASTIC ANAEMIA
     Dosage: 100 MG BID ORAL FORMULATION: CAPSULE
     Route: 048
     Dates: start: 20110711, end: 20110930
  7. COTRIM [Suspect]
     Indication: PNEUMOCYSTIS JIROVECI PNEUMONIA
     Dosage: 4 DF BID ORAL  FORMULATION: TABLET
     Route: 048
     Dates: start: 20110929, end: 20111002
  8. FOSCAVIR [Suspect]
     Indication: PNEUMONIA CYTOMEGALOVIRAL
     Dosage: 4200 MG QD ,F ORMULATION: INJECTION
     Dates: start: 20110927, end: 20111001

REACTIONS (3)
  - CONTINUOUS HAEMODIAFILTRATION [None]
  - RENAL FAILURE ACUTE [None]
  - PNEUMONIA CYTOMEGALOVIRAL [None]
